FAERS Safety Report 7156745-6 (Version None)
Quarter: 2010Q4

REPORT INFORMATION
  Report Type: 
  Country: None (occurrence: None)
  Receive Date: 20101214
  Receipt Date: 20091207
  Transmission Date: 20110411
  Serious: No
  Sender: FDA-Public Use
  Company Number: US-ASTRAZENECA-2009SE30606

PATIENT
  Age: 82 Year
  Sex: Male
  Weight: 90.7 kg

DRUGS (7)
  1. CRESTOR [Suspect]
     Route: 048
  2. PLAVIX [Concomitant]
  3. COREG [Concomitant]
  4. NORVASC [Concomitant]
  5. GLIPIZIDE [Concomitant]
  6. HYZAAR [Concomitant]
  7. EYE DROPS [Concomitant]
     Indication: GLAUCOMA

REACTIONS (3)
  - ALBUMINURIA [None]
  - ILL-DEFINED DISORDER [None]
  - MYALGIA [None]
